FAERS Safety Report 25259994 (Version 1)
Quarter: 2025Q2

REPORT INFORMATION
  Report Type: Spontaneous
  Country: US (occurrence: US)
  Receive Date: 20250501
  Receipt Date: 20250501
  Transmission Date: 20250716
  Serious: No
  Sender: BOEHRINGER INGELHEIM
  Company Number: US-BoehringerIngelheim-2025-BI-024822

PATIENT
  Age: 61 Year
  Sex: Male
  Weight: 250 kg

DRUGS (5)
  1. JARDIANCE [Suspect]
     Active Substance: EMPAGLIFLOZIN
     Indication: Type 2 diabetes mellitus
  2. MOUNJARO [Suspect]
     Active Substance: TIRZEPATIDE
     Indication: Type 2 diabetes mellitus
  3. MOUNJARO [Suspect]
     Active Substance: TIRZEPATIDE
  4. MOUNJARO [Suspect]
     Active Substance: TIRZEPATIDE
  5. MOUNJARO [Suspect]
     Active Substance: TIRZEPATIDE

REACTIONS (3)
  - Injection site pain [Unknown]
  - Glycosylated haemoglobin increased [Unknown]
  - Weight loss poor [Unknown]
